FAERS Safety Report 19163522 (Version 1)
Quarter: 2021Q2

REPORT INFORMATION
  Report Type: Spontaneous
  Country: US (occurrence: US)
  Receive Date: 20210421
  Receipt Date: 20210421
  Transmission Date: 20210717
  Serious: No
  Sender: FDA-Public Use
  Company Number: US-BIOVITRUM-2021US3827

PATIENT
  Sex: Male
  Weight: 11 kg

DRUGS (7)
  1. PROMACTA [Concomitant]
     Active Substance: ELTROMBOPAG OLAMINE
     Dosage: POWD PACK
  2. SULFAMETHOXAZOLE?TRIMETHOPRIM [Concomitant]
     Active Substance: SULFAMETHOXAZOLE\TRIMETHOPRIM
  3. TIMOLOL MALEATE. [Concomitant]
     Active Substance: TIMOLOL MALEATE
     Dosage: 0.5 % SOL?GEL
  4. GAMMAGARD LIQUID [Concomitant]
     Active Substance: HUMAN IMMUNOGLOBULIN G
  5. SYNAGIS [Suspect]
     Active Substance: PALIVIZUMAB
     Indication: BONE MARROW TRANSPLANT
     Route: 030
  6. AMICAR [Concomitant]
     Active Substance: AMINOCAPROIC ACID
     Dosage: 250 MG/ML SOLUTION
  7. SYNAGIS [Suspect]
     Active Substance: PALIVIZUMAB
     Indication: WISKOTT-ALDRICH SYNDROME

REACTIONS (2)
  - Blood immunoglobulin G decreased [Unknown]
  - Off label use [Unknown]
